FAERS Safety Report 25268246 (Version 2)
Quarter: 2025Q2

REPORT INFORMATION
  Report Type: Spontaneous
  Country: CA (occurrence: CA)
  Receive Date: 20250505
  Receipt Date: 20250512
  Transmission Date: 20250717
  Serious: Yes (Hospitalization, Other)
  Sender: PFIZER
  Company Number: CA-PFIZER INC-202500055693

PATIENT
  Age: 50 Year
  Sex: Male

DRUGS (7)
  1. ABRILADA [Suspect]
     Active Substance: ADALIMUMAB-AFZB
     Indication: Psoriasis
     Route: 058
     Dates: start: 20220606, end: 202501
  2. BENZTROPINE [Concomitant]
     Active Substance: BENZTROPINE
  3. ZUCLOPENTHIXOL [Concomitant]
     Active Substance: ZUCLOPENTHIXOL
  4. LORAZEPAM [Concomitant]
     Active Substance: LORAZEPAM
  5. PREDNISONE [Concomitant]
     Active Substance: PREDNISONE
  6. PANTOPRAZOLE [Concomitant]
     Active Substance: PANTOPRAZOLE
  7. CHOLECALCIFEROL [Concomitant]
     Active Substance: CHOLECALCIFEROL

REACTIONS (4)
  - Encephalitis autoimmune [Unknown]
  - Psoriatic arthropathy [Unknown]
  - Delirium [Unknown]
  - Akathisia [Unknown]

NARRATIVE: CASE EVENT DATE: 20250101
